FAERS Safety Report 7567943-1 (Version None)
Quarter: 2011Q2

REPORT INFORMATION
  Report Type: 
  Country: None (occurrence: None)
  Receive Date: 20110623
  Receipt Date: 20110617
  Transmission Date: 20111010
  Serious: Yes (Other)
  Sender: FDA-Public Use
  Company Number: US-B.I. PHARMACEUTICALS,INC./RIDGEFIELD-2011-BP-15056PF

PATIENT
  Sex: Male

DRUGS (6)
  1. SALBUTAMOL SULFATE [Concomitant]
     Indication: INFLUENZA
     Dates: start: 20090501
  2. SPIRIVA [Suspect]
     Indication: CHRONIC OBSTRUCTIVE PULMONARY DISEASE
  3. SPIRIVA [Suspect]
     Indication: WHEEZING
  4. MEDICATIONS NOT FURTHER SPECIFIED [Concomitant]
  5. SPIRIVA [Suspect]
     Indication: INFLUENZA
     Dates: start: 20090501
  6. SALBUTAMOL SULFATE [Concomitant]
     Indication: WHEEZING

REACTIONS (6)
  - PROTHROMBIN TIME PROLONGED [None]
  - PRODUCT CONTAMINATION [None]
  - STRESS [None]
  - CARDIAC FUNCTION TEST [None]
  - MYOCARDIAL INFARCTION [None]
  - INTERNATIONAL NORMALISED RATIO INCREASED [None]
